FAERS Safety Report 20252166 (Version 1)
Quarter: 2021Q4

REPORT INFORMATION
  Report Type: Spontaneous
  Country: CN (occurrence: CN)
  Receive Date: 20211229
  Receipt Date: 20211229
  Transmission Date: 20220303
  Serious: Yes (Hospitalization, Other)
  Sender: FDA-Public Use
  Company Number: CN-BAXTER-2021BAX042169

PATIENT
  Age: 57 Year
  Sex: Female
  Weight: 52 kg

DRUGS (4)
  1. CYCLOPHOSPHAMIDE [Suspect]
     Active Substance: CYCLOPHOSPHAMIDE
     Indication: Breast cancer female
     Dosage: FIRST CYCLE OF EC 4-T, CYCLOPHOSPHAMIDE 800 MG + 0.9% SODIUM CHLORIDE 100 ML, ONCE
     Route: 042
     Dates: start: 20211130, end: 20211130
  2. SODIUM CHLORIDE [Suspect]
     Active Substance: SODIUM CHLORIDE
     Indication: Medication dilution
     Dosage: FIRST CYCLE OF EC 4-T, CYCLOPHOSPHAMIDE 800 MG + 0.9% SODIUM CHLORIDE 100 ML, ONCE
     Route: 042
     Dates: start: 20211130, end: 20211130
  3. SODIUM CHLORIDE [Suspect]
     Active Substance: SODIUM CHLORIDE
     Dosage: FIRST CYCLE OF EC 4-T, EPIRUBICIN HYDROCHLORIDE 135 MG + 0.9% SODIUM CHLORIDE 250 ML, ONCE
     Route: 041
     Dates: start: 20211130, end: 20211130
  4. EPIRUBICIN [Suspect]
     Active Substance: EPIRUBICIN
     Indication: Breast cancer female
     Dosage: FIRST CYCLE OF EC 4-T, EPIRUBICIN HYDROCHLORIDE 135 MG + 0.9% SODIUM CHLORIDE 250 ML, ONCE
     Route: 042
     Dates: start: 20211130, end: 20211130

REACTIONS (1)
  - Myelosuppression [Recovering/Resolving]

NARRATIVE: CASE EVENT DATE: 20211207
